FAERS Safety Report 14958178 (Version 1)
Quarter: 2018Q2

REPORT INFORMATION
  Report Type: Spontaneous
  Country: GR (occurrence: GR)
  Receive Date: 20180531
  Receipt Date: 20180531
  Transmission Date: 20180711
  Serious: Yes (Other)
  Sender: FDA-Public Use
  Company Number: GR-JNJFOC-20180534689

PATIENT
  Age: 42 Year
  Sex: Female
  Weight: 103 kg

DRUGS (1)
  1. STELARA [Suspect]
     Active Substance: USTEKINUMAB
     Indication: PSORIATIC ARTHROPATHY
     Route: 058
     Dates: start: 20160621

REACTIONS (1)
  - Myelitis transverse [Not Recovered/Not Resolved]

NARRATIVE: CASE EVENT DATE: 201803
